FAERS Safety Report 18489717 (Version 4)
Quarter: 2021Q2

REPORT INFORMATION
  Report Type: Report from Study
  Country: US (occurrence: US)
  Receive Date: 20201111
  Receipt Date: 20210426
  Transmission Date: 20210717
  Serious: Yes (Hospitalization)
  Sender: FDA-Public Use
  Company Number: US-GLAXOSMITHKLINE-US2020AMR209234

PATIENT
  Sex: Female
  Weight: 66.67 kg

DRUGS (3)
  1. NIRAPARIB [Suspect]
     Active Substance: NIRAPARIB
     Dosage: 200 MG, QD
     Dates: end: 20210115
  2. NIRAPARIB [Suspect]
     Active Substance: NIRAPARIB
     Dosage: 200 MG, QD
  3. NIRAPARIB [Suspect]
     Active Substance: NIRAPARIB
     Indication: OVARIAN CANCER
     Dosage: 200 MG, QD
     Dates: start: 20201012, end: 20201109

REACTIONS (6)
  - Therapeutic response unexpected [Unknown]
  - Product dose omission issue [Unknown]
  - Hospitalisation [Unknown]
  - Drug ineffective [Unknown]
  - Energy increased [Unknown]
  - COVID-19 [Unknown]
